FAERS Safety Report 8568865-X (Version None)
Quarter: 2012Q3

REPORT INFORMATION
  Report Type: 
  Country: None (occurrence: None)
  Receive Date: 20120803
  Receipt Date: 20120130
  Transmission Date: 20120928
  Serious: No
  Sender: FDA-Public Use
  Company Number: US-ABBOTT-12P-163-0900166-00

PATIENT
  Sex: Male
  Weight: 102.15 kg

DRUGS (7)
  1. LIPITOR [Concomitant]
     Indication: BLOOD CHOLESTEROL INCREASED
  2. NIASPAN [Suspect]
     Indication: HIGH DENSITY LIPOPROTEIN DECREASED
     Dates: start: 20110401
  3. DIOVAN [Concomitant]
     Indication: ANGIOPATHY
  4. SINGULAIR [Concomitant]
     Indication: ASTHMA
  5. LOVAZA [Concomitant]
     Indication: VITAMIN SUPPLEMENTATION
  6. HUMULIN 70/30 [Concomitant]
     Indication: DIABETES MELLITUS
  7. ASPIRIN [Concomitant]
     Indication: CARDIAC DISORDER

REACTIONS (1)
  - FLUSHING [None]
